FAERS Safety Report 8180767-X (Version None)
Quarter: 2012Q1

REPORT INFORMATION
  Report Type: 
  Country: None (occurrence: None)
  Receive Date: 20120302
  Receipt Date: 20120227
  Transmission Date: 20120608
  Serious: Yes (Hospitalization)
  Sender: FDA-Public Use
  Company Number: US-PFIZER INC-2012052172

PATIENT
  Sex: Female
  Weight: 113 kg

DRUGS (8)
  1. PRISTIQ [Suspect]
     Indication: SCHIZOPHRENIA, PARANOID TYPE
     Dosage: 100 MG, DAILY
     Route: 048
     Dates: start: 20111201, end: 20120201
  2. PROZAC [Concomitant]
     Indication: DEPRESSION
     Dosage: 20 MG, DAILY
  3. PRILOSEC [Concomitant]
     Indication: GASTROOESOPHAGEAL REFLUX DISEASE
     Dosage: 20 MG, UNK
  4. PRAVACHOL [Concomitant]
     Indication: BLOOD CHOLESTEROL INCREASED
     Dosage: 40 MG, DAILY
     Route: 048
  5. LISINOPRIL [Concomitant]
     Indication: HYPERTENSION
     Dosage: 10 MG, DAILY
  6. RESTORIL [Concomitant]
     Indication: SLEEP DISORDER
     Dosage: 15 MG, UNK
  7. PRISTIQ [Suspect]
     Indication: DEPRESSION
     Dosage: 8000 MG (80 TABLETS OF 100MG)
     Route: 048
     Dates: end: 20120201
  8. PROCARDIA [Concomitant]
     Indication: HYPERTENSION
     Dosage: 60 MG, DAILY
     Route: 048

REACTIONS (2)
  - INTENTIONAL OVERDOSE [None]
  - SUICIDE ATTEMPT [None]
